FAERS Safety Report 9765076 (Version 1)
Quarter: 2013Q4

REPORT INFORMATION
  Report Type: Spontaneous
  Country: US (occurrence: None)
  Receive Date: 20131216
  Receipt Date: 20131216
  Transmission Date: 20140711
  Serious: No
  Sender: FDA-Public Use
  Company Number: None

PATIENT
  Age: 65 Year
  Sex: Male
  Weight: 101.15 kg

DRUGS (1)
  1. XARELTO [Suspect]
     Indication: ATRIAL FIBRILLATION
     Dosage: 1 TABLET ONCE DAILY TAKEN BY MOUTH
     Route: 048
     Dates: start: 20120531, end: 20131201

REACTIONS (2)
  - Blood urine present [None]
  - Chromaturia [None]
